FAERS Safety Report 8971967 (Version 1)
Quarter: 2012Q4

REPORT INFORMATION
  Report Type: 
  Country: TR (occurrence: TR)
  Receive Date: 20121218
  Receipt Date: 20121218
  Transmission Date: 20130627
  Serious: Yes (Other)
  Sender: FDA-Public Use
  Company Number: PHHY2012TR115622

PATIENT
  Age: 27 Year
  Sex: Male

DRUGS (1)
  1. DEXAMETHASONE SANDOZ [Suspect]
     Dosage: 16 mg/kg, UNK

REACTIONS (4)
  - Osteonecrosis [Recovered/Resolved]
  - Arthralgia [Recovered/Resolved]
  - Abasia [Recovered/Resolved]
  - Osteoporosis [Recovered/Resolved]
